FAERS Safety Report 25412217 (Version 2)
Quarter: 2025Q3

REPORT INFORMATION
  Report Type: Spontaneous
  Country: US (occurrence: US)
  Receive Date: 20250609
  Receipt Date: 20250707
  Transmission Date: 20251020
  Serious: No
  Sender: PFIZER
  Company Number: US-PFIZER INC-202500117029

PATIENT
  Age: 16 Year
  Sex: Male

DRUGS (4)
  1. LITFULO [Suspect]
     Active Substance: RITLECITINIB TOSYLATE
     Dosage: 50 MG, DAILY
     Route: 048
     Dates: start: 20250516
  2. DESMOPRESSIN [Concomitant]
     Active Substance: DESMOPRESSIN
  3. DEXMETHYLPHENIDATE [Concomitant]
     Active Substance: DEXMETHYLPHENIDATE
  4. GUANFACINE [Concomitant]
     Active Substance: GUANFACINE

REACTIONS (2)
  - Drug ineffective [Unknown]
  - Product dose omission issue [Unknown]
